FAERS Safety Report 13674389 (Version 1)
Quarter: 2017Q2

REPORT INFORMATION
  Report Type: Spontaneous
  Country: US (occurrence: US)
  Receive Date: 20170621
  Receipt Date: 20170621
  Transmission Date: 20170830
  Serious: Yes (Hospitalization, Other)
  Sender: FDA-Public Use
  Company Number: US-ACCORD-052756

PATIENT
  Age: 54 Year
  Sex: Female

DRUGS (1)
  1. DOCETAXEL. [Suspect]
     Active Substance: DOCETAXEL
     Indication: BREAST CANCER

REACTIONS (5)
  - Febrile neutropenia [Recovered/Resolved]
  - Hypophagia [Unknown]
  - Mucosal inflammation [Unknown]
  - Tachycardia [Recovered/Resolved]
  - Nausea [Unknown]
